FAERS Safety Report 8397434-X (Version None)
Quarter: 2012Q2

REPORT INFORMATION
  Report Type: 
  Country: None (occurrence: None)
  Receive Date: 20120529
  Receipt Date: 20120529
  Transmission Date: 20120825
  Serious: Yes (Hospitalization)
  Sender: FDA-Public Use
  Company Number: None

PATIENT
  Age: 50 Year
  Sex: Female
  Weight: 60.782 kg

DRUGS (1)
  1. SOLODYN [Suspect]
     Indication: ROSACEA
     Dosage: 1 1 BEDTIME PO
     Route: 048
     Dates: start: 20120517, end: 20120525

REACTIONS (1)
  - HYPERSENSITIVITY [None]
